FAERS Safety Report 8722790 (Version 3)
Quarter: 2012Q4

REPORT INFORMATION
  Report Type: 
  Country: JP (occurrence: JP)
  Receive Date: 20120814
  Receipt Date: 20121001
  Transmission Date: 20130627
  Serious: Yes (Other)
  Sender: FDA-Public Use
  Company Number: JP-GLAXOSMITHKLINE-B0821907A

PATIENT
  Age: 38 Year
  Sex: Female
  Weight: 95 kg

DRUGS (11)
  1. FLOLAN [Suspect]
     Indication: PULMONARY ARTERIAL HYPERTENSION
     Route: 042
     Dates: start: 20120731
  2. AMBRISENTAN [Suspect]
     Indication: PRODUCT USED FOR UNKNOWN INDICATION
     Dosage: 5MG Alternate days
     Route: 048
     Dates: start: 20120804, end: 20120806
  3. AMBRISENTAN [Suspect]
     Indication: PRODUCT USED FOR UNKNOWN INDICATION
     Dosage: 2.5MG Alternate days
     Route: 048
     Dates: start: 20120912
  4. BERASUS LA [Concomitant]
     Indication: PULMONARY ARTERIAL HYPERTENSION
     Dosage: 180MCG Twice per day
     Route: 048
     Dates: end: 20120806
  5. TRACLEER [Concomitant]
     Indication: PULMONARY ARTERIAL HYPERTENSION
     Dosage: 125MG Twice per day
     Route: 048
     Dates: end: 20120804
  6. ADCIRCA [Concomitant]
     Indication: PULMONARY ARTERIAL HYPERTENSION
     Dosage: 40MG Per day
     Route: 048
  7. WARFARIN [Concomitant]
     Indication: THROMBOSIS PROPHYLAXIS
     Dosage: 5MG Per day
     Route: 048
  8. ODRIC [Concomitant]
     Dosage: 1MG Per day
     Route: 048
  9. FAMOTIDINE [Concomitant]
     Route: 048
     Dates: end: 20120804
  10. FUROSEMIDE [Concomitant]
     Route: 048
  11. SPIRONOLACTONE [Concomitant]
     Route: 048

REACTIONS (7)
  - Drug-induced liver injury [Recovering/Resolving]
  - Hepatic function abnormal [Recovering/Resolving]
  - Aspartate aminotransferase increased [Recovering/Resolving]
  - Alanine aminotransferase increased [Recovering/Resolving]
  - Gamma-glutamyltransferase increased [Recovering/Resolving]
  - Blood lactate dehydrogenase increased [Recovering/Resolving]
  - Liver disorder [Recovering/Resolving]
